APPROVED DRUG PRODUCT: ALBUTEROL
Active Ingredient: ALBUTEROL
Strength: 0.09MG/INH
Dosage Form/Route: AEROSOL, METERED;INHALATION
Application: A072273 | Product #001
Applicant: ARMSTRONG PHARMACEUTICALS INC
Approved: Aug 14, 1996 | RLD: No | RS: No | Type: DISCN